FAERS Safety Report 10478440 (Version 1)
Quarter: 2014Q3

REPORT INFORMATION
  Report Type: Spontaneous
  Country: GB (occurrence: GB)
  Receive Date: 20140926
  Receipt Date: 20140926
  Transmission Date: 20150326
  Serious: Yes (Hospitalization)
  Sender: FDA-Public Use
  Company Number: GB-PFIZER INC-2014262443

PATIENT
  Age: 65 Year
  Sex: Male
  Weight: 78.6 kg

DRUGS (4)
  1. CISPLATIN. [Suspect]
     Active Substance: CISPLATIN
     Indication: GASTRIC CANCER
     Dosage: 110 MG, UNKNOWN FREQUENCY, LAST DOSE BEFORE EVENT: 08NOV2013
     Route: 042
     Dates: start: 20130927
  2. EPIRUBICIN HCL [Suspect]
     Active Substance: EPIRUBICIN HYDROCHLORIDE
     Indication: GASTRIC CANCER
     Dosage: 100 MG, UNKNOWN FREQUENCY, LAST DOSE BEFORE EVENT: 08NOV2013
     Route: 042
     Dates: start: 20130927
  3. XELODA [Suspect]
     Active Substance: CAPECITABINE
     Indication: GASTRIC CANCER
     Dosage: 2500 MG, 1X/DAY LAST DOSE BEFORE THE EVENT 19NOV2013
     Route: 048
     Dates: start: 20131108
  4. AVASTIN [Suspect]
     Active Substance: BEVACIZUMAB
     Indication: GASTRIC CANCER
     Dosage: 630 MG, UNKNOWN FREQUENCY, LAST DOSE ADMINISTERED BEFORE EVENT: 27SEP2013
     Route: 042
     Dates: start: 20130927

REACTIONS (1)
  - Gastrointestinal pain [Recovered/Resolved]

NARRATIVE: CASE EVENT DATE: 20131130
